FAERS Safety Report 26158658 (Version 1)
Quarter: 2025Q4

REPORT INFORMATION
  Report Type: Spontaneous
  Country: US (occurrence: US)
  Receive Date: 20251215
  Receipt Date: 20251215
  Transmission Date: 20260118
  Serious: Yes (Other)
  Sender: ABBVIE
  Company Number: US-ABBVIE-6588325

PATIENT

DRUGS (1)
  1. RINVOQ [Suspect]
     Active Substance: UPADACITINIB
     Indication: Dermatitis atopic
     Route: 048
     Dates: end: 20251130

REACTIONS (5)
  - Pneumothorax [Unknown]
  - Haemothorax [Unknown]
  - Disease risk factor [Unknown]
  - Dermatitis atopic [Unknown]
  - Rib fracture [Unknown]
